FAERS Safety Report 5669731-X (Version None)
Quarter: 2008Q1

REPORT INFORMATION
  Report Type: 
  Country: None (occurrence: None)
  Receive Date: 20080313
  Receipt Date: 20080313
  Transmission Date: 20080703
  Serious: Yes (Hospitalization)
  Sender: FDA-Public Use
  Company Number: None

PATIENT
  Sex: Male
  Weight: 14.4 kg

DRUGS (5)
  1. CYTARABINE [Suspect]
     Dosage: 14400 MG
  2. L-ASPARAGINASE [Suspect]
     Dosage: 7300 IU
  3. .. [Concomitant]
  4. .. [Concomitant]
  5. .. [Concomitant]

REACTIONS (10)
  - ACIDOSIS [None]
  - BLOOD CULTURE POSITIVE [None]
  - CLOSTRIDIAL INFECTION [None]
  - HEPATITIS [None]
  - ILEUS [None]
  - MICROCOCCUS INFECTION [None]
  - MULTI-ORGAN FAILURE [None]
  - PANCREATITIS [None]
  - RESPIRATORY DISTRESS [None]
  - STAPHYLOCOCCAL INFECTION [None]
